FAERS Safety Report 19420547 (Version 1)
Quarter: 2021Q2

REPORT INFORMATION
  Report Type: Spontaneous
  Country: CA (occurrence: CA)
  Receive Date: 20210615
  Receipt Date: 20210615
  Transmission Date: 20210717
  Serious: Yes (Other)
  Sender: FDA-Public Use
  Company Number: CA-ALLERGAN-2122848US

PATIENT
  Sex: Male

DRUGS (3)
  1. BRIMONIDINE [Concomitant]
     Active Substance: BRIMONIDINE TARTRATE
     Indication: UVEITIC GLAUCOMA
     Dosage: 1 DF, BID
     Route: 061
  2. PREDNISOLONE UNK [Suspect]
     Active Substance: PREDNISOLONE
     Indication: EYE INFLAMMATION
     Dosage: 1 DF, Q6HR
     Route: 061
  3. PREDNISOLONE UNK [Suspect]
     Active Substance: PREDNISOLONE
     Indication: OCULAR HYPERTENSION
     Dosage: 1 DF, QD

REACTIONS (3)
  - Scleral thinning [Recovering/Resolving]
  - Conjunctival thinning [Recovering/Resolving]
  - Ocular implant exposure [Unknown]
